FAERS Safety Report 12738229 (Version 1)
Quarter: 2016Q3

REPORT INFORMATION
  Report Type: Report from Study
  Country: US (occurrence: US)
  Receive Date: 20160913
  Receipt Date: 20160913
  Transmission Date: 20161109
  Serious: Yes (Hospitalization)
  Sender: FDA-Public Use
  Company Number: US-ACTELION-A-NJ2016-141525

PATIENT
  Age: 43 Year
  Sex: Female

DRUGS (1)
  1. VELETRI [Suspect]
     Active Substance: EPOPROSTENOL
     Indication: PULMONARY ARTERIAL HYPERTENSION
     Dosage: 14 NG/KG, PER MIN
     Route: 042
     Dates: start: 20160811

REACTIONS (7)
  - Fatigue [Unknown]
  - Pyrexia [Unknown]
  - Fluid overload [Unknown]
  - Asthenia [Unknown]
  - Cardiac disorder [Unknown]
  - Catheter placement [Unknown]
  - Malaise [Unknown]
